FAERS Safety Report 22210920 (Version 1)
Quarter: 2023Q2

REPORT INFORMATION
  Report Type: Spontaneous
  Country: US (occurrence: None)
  Receive Date: 20230413
  Receipt Date: 20230413
  Transmission Date: 20230722
  Serious: Yes (Hospitalization)
  Sender: FDA-Public Use
  Company Number: None

PATIENT
  Age: 87 Year
  Sex: Male
  Weight: 95.25 kg

DRUGS (11)
  1. ABIRATERONE [Suspect]
     Active Substance: ABIRATERONE
     Indication: Prostate cancer
     Dosage: FREQUENCY : DAILY;?
     Route: 048
  2. ASPIRIN [Concomitant]
     Active Substance: ASPIRIN
  3. ATORVASTATIN [Concomitant]
     Active Substance: ATORVASTATIN
  4. CARVEDILOL [Suspect]
     Active Substance: CARVEDILOL
  5. NIFEDIPINE [Concomitant]
     Active Substance: NIFEDIPINE
  6. NITROGLYCERIN [Concomitant]
     Active Substance: NITROGLYCERIN
  7. OMEGA PLUS [Concomitant]
  8. PREDNISONE [Concomitant]
     Active Substance: PREDNISONE
  9. Q1O [Concomitant]
  10. CYANOCOBALAMIN\DEXPANTHENOL\NIACINAMIDE\PYRIDOXINE HYDROCHLORIDE\RIBOF [Concomitant]
     Active Substance: CYANOCOBALAMIN\DEXPANTHENOL\NIACINAMIDE\PYRIDOXINE HYDROCHLORIDE\RIBOFLAVIN 5^-PHOSPHATE SODIUM\THIA
  11. VITAMIN D [Concomitant]
     Active Substance: VITAMIN D NOS

REACTIONS (4)
  - Fall [None]
  - SARS-CoV-2 test positive [None]
  - Feeling abnormal [None]
  - Pneumonia [None]

NARRATIVE: CASE EVENT DATE: 20230408
